FAERS Safety Report 5825877-4 (Version None)
Quarter: 2008Q3

REPORT INFORMATION
  Report Type: 
  Country: None (occurrence: None)
  Receive Date: 20080729
  Receipt Date: 20080724
  Transmission Date: 20090109
  Serious: Yes (Disabling, Other)
  Sender: FDA-Public Use
  Company Number: GB-AVENTIS-200816394GDDC

PATIENT
  Age: 9 Year
  Sex: Female

DRUGS (1)
  1. DESMOMELT [Suspect]
     Route: 048
     Dates: start: 20060509, end: 20080601

REACTIONS (2)
  - ALOPECIA [None]
  - HAIR TEXTURE ABNORMAL [None]
